FAERS Safety Report 8287190-8 (Version None)
Quarter: 2012Q2

REPORT INFORMATION
  Report Type: 
  Country: None (occurrence: None)
  Receive Date: 20120416
  Receipt Date: 20120404
  Transmission Date: 20120825
  Serious: Yes (Other)
  Sender: FDA-Public Use
  Company Number: US-ROCHE-1056952

PATIENT
  Sex: Female

DRUGS (4)
  1. ZELBORAF [Suspect]
     Indication: MALIGNANT MELANOMA
     Dates: start: 20111201
  2. ZELBORAF [Suspect]
  3. ZELBORAF [Suspect]
  4. ZELBORAF [Suspect]

REACTIONS (8)
  - RESTLESS LEGS SYNDROME [None]
  - WEIGHT DECREASED [None]
  - FATIGUE [None]
  - NAUSEA [None]
  - ARTHRALGIA [None]
  - DECREASED APPETITE [None]
  - MYALGIA [None]
  - METASTASIS [None]
